FAERS Safety Report 7970741-8 (Version None)
Quarter: 2011Q4

REPORT INFORMATION
  Report Type: 
  Country: None (occurrence: None)
  Receive Date: 20111212
  Receipt Date: 20111201
  Transmission Date: 20120403
  Serious: Yes (Hospitalization, Other)
  Sender: FDA-Public Use
  Company Number: PHHY2011JP95157

PATIENT
  Age: 80 Year
  Sex: Male

DRUGS (4)
  1. HEPARIN AND PREPARATIONS [Concomitant]
     Dosage: 10000 ML, UNK
  2. OZAGREL SODIUM [Concomitant]
     Dosage: 160 MG, UNK
  3. DILTIAZEM HCL [Concomitant]
     Indication: HYPERTENSION
     Route: 048
  4. DIOVAN [Suspect]
     Dosage: 80 MG, UNK
     Route: 048

REACTIONS (4)
  - CEREBRAL INFARCTION [None]
  - AMAUROSIS FUGAX [None]
  - HYPOTENSION [None]
  - LUNG NEOPLASM MALIGNANT [None]
